FAERS Safety Report 9148327 (Version 1)
Quarter: 2013Q1

REPORT INFORMATION
  Report Type: Spontaneous
  Country: US (occurrence: None)
  Receive Date: 20130228
  Receipt Date: 20130228
  Transmission Date: 20140127
  Serious: Yes (Other)
  Sender: FDA-Public Use
  Company Number: None

PATIENT
  Age: 40 Year
  Sex: Female
  Weight: 102.06 kg

DRUGS (2)
  1. MIRENA [Suspect]
     Indication: CONTRACEPTION
     Dosage: IMPLANTED Q 5 YRS INTRA-UTERINE
     Route: 015
     Dates: start: 201005
  2. MIRENA [Suspect]
     Indication: MENSTRUAL CYCLE MANAGEMENT
     Dosage: IMPLANTED Q 5 YRS INTRA-UTERINE
     Route: 015
     Dates: start: 201005

REACTIONS (2)
  - Vaginal infection [None]
  - Medical device complication [None]
